FAERS Safety Report 6474995-9 (Version None)
Quarter: 2009Q4

REPORT INFORMATION
  Report Type: 
  Country: None (occurrence: None)
  Receive Date: 20091204
  Receipt Date: 20090326
  Transmission Date: 20100525
  Serious: Yes (Death, Hospitalization)
  Sender: FDA-Public Use
  Company Number: US-ELI_LILLY_AND_COMPANY-US200903003893

PATIENT
  Sex: Male
  Weight: 159.64 kg

DRUGS (13)
  1. GEMZAR [Suspect]
     Indication: BREAST CANCER
     Dosage: 2280 MG, UNK
     Dates: start: 20090311, end: 20090311
  2. HERCEPTIN [Concomitant]
     Indication: BREAST CANCER
     Dosage: UNK, OTHER
     Dates: start: 20081101
  3. ZOMETA [Concomitant]
     Indication: METASTASES TO BONE
  4. BENICAR HCT [Concomitant]
  5. ALEVE [Concomitant]
  6. GLUCOVANCE [Concomitant]
  7. JANUVIA [Concomitant]
  8. ATENOLOL [Concomitant]
  9. NORVASC [Concomitant]
  10. FLEXERIL [Concomitant]
  11. ADVAIR DISKUS 100/50 [Concomitant]
  12. ALBUTEROL [Concomitant]
  13. ACIPHEX [Concomitant]

REACTIONS (3)
  - HEPATIC FAILURE [None]
  - MULTI-ORGAN FAILURE [None]
  - RENAL FAILURE [None]
